FAERS Safety Report 6608632-7 (Version None)
Quarter: 2010Q1

REPORT INFORMATION
  Report Type: 
  Country: None (occurrence: None)
  Receive Date: 20100226
  Receipt Date: 20100226
  Transmission Date: 20100710
  Serious: No
  Sender: FDA-Public Use
  Company Number: None

PATIENT
  Age: 25 Year
  Sex: Female
  Weight: 67.1324 kg

DRUGS (5)
  1. HALOPERIDOL [Suspect]
     Dosage: 5MG IM  (1 SHOT)
     Route: 030
  2. LIBRIUM [Concomitant]
  3. AMITRIPTYLINE HCL [Concomitant]
  4. OXYCODONE HCL [Concomitant]
  5. CIPRO [Concomitant]

REACTIONS (2)
  - DECREASED EYE CONTACT [None]
  - POSTURE ABNORMAL [None]
